FAERS Safety Report 17338745 (Version 1)
Quarter: 2020Q1

REPORT INFORMATION
  Report Type: Spontaneous
  Country: US (occurrence: US)
  Receive Date: 20200129
  Receipt Date: 20200129
  Transmission Date: 20200409
  Serious: No
  Sender: FDA-Public Use
  Company Number: US-ALLERGAN-1900926US

PATIENT
  Age: 76 Year
  Sex: Female

DRUGS (2)
  1. TWO HEART MEDICATION [Concomitant]
     Indication: CARDIAC DISORDER
     Dosage: UNK
     Route: 048
  2. PRED MILD [Suspect]
     Active Substance: PREDNISOLONE ACETATE
     Indication: DRY EYE
     Dosage: UNK
     Route: 047
     Dates: start: 20181231, end: 20190103

REACTIONS (2)
  - Off label use [Unknown]
  - Intentional product misuse [Unknown]
